FAERS Safety Report 9445389 (Version 1)
Quarter: 2013Q3

REPORT INFORMATION
  Report Type: Report from Study
  Country: CA (occurrence: CA)
  Receive Date: 20130807
  Receipt Date: 20130807
  Transmission Date: 20140515
  Serious: Yes (Other)
  Sender: FDA-Public Use
  Company Number: CA-JNJFOC-20130800775

PATIENT
  Age: 73 Year
  Sex: Male
  Weight: 72.58 kg

DRUGS (1)
  1. SIMPONI [Suspect]
     Indication: RHEUMATOID ARTHRITIS
     Dosage: 0.5 ML PRE-FILLED SYRINGE
     Route: 058

REACTIONS (1)
  - Urinary tract infection [Unknown]
